FAERS Safety Report 7070331-8 (Version None)
Quarter: 2010Q4

REPORT INFORMATION
  Report Type: 
  Country: None (occurrence: None)
  Receive Date: 20101028
  Receipt Date: 20101001
  Transmission Date: 20110411
  Serious: No
  Sender: FDA-Public Use
  Company Number: US-WYE-H17952010

PATIENT
  Sex: Female

DRUGS (2)
  1. ADVIL [Suspect]
     Dosage: UNKNOWN
     Route: 048
  2. ADVIL [Suspect]
     Dosage: UNKNOWN
     Route: 048

REACTIONS (1)
  - DRUG INEFFECTIVE [None]
